FAERS Safety Report 23580712 (Version 1)
Quarter: 2024Q1

REPORT INFORMATION
  Report Type: Spontaneous
  Country: US (occurrence: None)
  Receive Date: 20240229
  Receipt Date: 20240229
  Transmission Date: 20240409
  Serious: No
  Sender: FDA-Public Use
  Company Number: None

PATIENT
  Age: 60 Year
  Sex: Female

DRUGS (1)
  1. AMBRISENTAN [Suspect]
     Active Substance: AMBRISENTAN
     Indication: Pulmonary arterial hypertension
     Dosage: 5MG QD ORAL?
     Route: 048
     Dates: start: 20230906, end: 20240229

REACTIONS (2)
  - Chronic obstructive pulmonary disease [None]
  - Therapy cessation [None]

NARRATIVE: CASE EVENT DATE: 20240229
